FAERS Safety Report 10429285 (Version 1)
Quarter: 2014Q3

REPORT INFORMATION
  Report Type: Spontaneous
  Country: US (occurrence: US)
  Receive Date: 20140904
  Receipt Date: 20140904
  Transmission Date: 20150326
  Serious: Yes (Hospitalization, Other)
  Sender: FDA-Public Use
  Company Number: US-JNJFOC-20140825858

PATIENT
  Age: 18 Month
  Sex: Male

DRUGS (1)
  1. ACETAMINOPHEN. [Suspect]
     Active Substance: ACETAMINOPHEN
     Indication: PRODUCT USED FOR UNKNOWN INDICATION
     Dosage: APPROXIMATELY SEVENTY-FIVE 500MG SWEET-COATED ACETAMINOPHEN TABLETS
     Route: 048

REACTIONS (5)
  - Convulsion [Unknown]
  - Decerebrate posture [Unknown]
  - Overdose [Unknown]
  - Unresponsive to stimuli [Unknown]
  - Vomiting [Unknown]
